FAERS Safety Report 25964817 (Version 5)
Quarter: 2025Q4

REPORT INFORMATION
  Report Type: Report from Study
  Country: CN (occurrence: CN)
  Receive Date: 20251027
  Receipt Date: 20251218
  Transmission Date: 20260118
  Serious: Yes (Hospitalization, Other)
  Sender: PFIZER
  Company Number: CN-PFIZER INC-PV202500104598

PATIENT
  Age: 12 Year
  Sex: Male
  Weight: 40 kg

DRUGS (21)
  1. XYNTHA [Suspect]
     Active Substance: MOROCTOCOG ALFA
     Indication: Factor VIII deficiency
     Dosage: 3000 IU, ALTERNATE DAY
     Dates: start: 202503
  2. XYNTHA [Suspect]
     Active Substance: MOROCTOCOG ALFA
     Indication: Factor VIII inhibition
     Dosage: 2000 IU, 1X/DAY
     Dates: start: 20250410
  3. XYNTHA [Suspect]
     Active Substance: MOROCTOCOG ALFA
     Dosage: 3000 IU, 1X/DAY
     Dates: start: 20250416
  4. XYNTHA [Suspect]
     Active Substance: MOROCTOCOG ALFA
     Dosage: 2000 IU, 1X/DAY
     Dates: start: 20250529
  5. XYNTHA [Suspect]
     Active Substance: MOROCTOCOG ALFA
     Dosage: 3000 IU, 1X/DAY
     Dates: start: 20250627
  6. XYNTHA [Suspect]
     Active Substance: MOROCTOCOG ALFA
     Dosage: 2000 IU, 1X/DAY
     Dates: start: 20250701
  7. XYNTHA [Suspect]
     Active Substance: MOROCTOCOG ALFA
     Dosage: 2000 IU, ALTERNATE DAY (QOD)
  8. XYNTHA [Suspect]
     Active Substance: MOROCTOCOG ALFA
     Dosage: 2000 IU, 1X/DAY
  9. XYNTHA [Suspect]
     Active Substance: MOROCTOCOG ALFA
     Dosage: 3000 IU AT A TIME, ONCE DAILY
     Route: 042
  10. XYNTHA [Suspect]
     Active Substance: MOROCTOCOG ALFA
     Dosage: 3000 IU, 1X/DAY
     Route: 042
  11. XYNTHA [Suspect]
     Active Substance: MOROCTOCOG ALFA
     Dosage: 4000 IU, 1X/DAY
     Route: 041
  12. XYNTHA [Suspect]
     Active Substance: MOROCTOCOG ALFA
     Dosage: 2000 IU, ALTERNATE DAY(QOD)
     Dates: start: 20251030
  13. XYNTHA [Suspect]
     Active Substance: MOROCTOCOG ALFA
     Dosage: 3000 IU, 1X/DAY(QD)
  14. XYNTHA [Suspect]
     Active Substance: MOROCTOCOG ALFA
     Dosage: 2000 IU, ALTERNATE DAY(QOD)
  15. XYNTHA [Suspect]
     Active Substance: MOROCTOCOG ALFA
     Dosage: 50 IU/KG, ALTERNATE DAY(QOD)
  16. XYNTHA [Suspect]
     Active Substance: MOROCTOCOG ALFA
     Dosage: 1500 IU, 1X/DAY
     Route: 040
  17. EMICIZUMAB [Concomitant]
     Active Substance: EMICIZUMAB
     Dosage: 60 MG, ONCE EVERY 2 WEEKS FOR A TOTAL OF TWICE
     Dates: start: 20251030
  18. EMICIZUMAB [Concomitant]
     Active Substance: EMICIZUMAB
     Dosage: 60 MG
     Dates: start: 20251107
  19. EMICIZUMAB [Concomitant]
     Active Substance: EMICIZUMAB
     Dosage: 120 MG, WEEKLY
     Dates: start: 20251114
  20. EMICIZUMAB [Concomitant]
     Active Substance: EMICIZUMAB
     Dosage: 60 MG, ONCE
     Dates: start: 20251121
  21. EMICIZUMAB [Concomitant]
     Active Substance: EMICIZUMAB
     Dosage: 60 MG, ONCE EVERY 2 WEEKS

REACTIONS (8)
  - Haemophilic arthropathy [Unknown]
  - Iron deficiency anaemia [Unknown]
  - Haemarthrosis [Unknown]
  - Joint swelling [Recovering/Resolving]
  - Arthralgia [Recovering/Resolving]
  - Peripheral swelling [Unknown]
  - Back pain [Recovering/Resolving]
  - Off label use [Unknown]

NARRATIVE: CASE EVENT DATE: 20250101
